FAERS Safety Report 14879680 (Version 11)
Quarter: 2019Q4

REPORT INFORMATION
  Report Type: Spontaneous
  Country: CZ (occurrence: CZ)
  Receive Date: 20180511
  Receipt Date: 20191216
  Transmission Date: 20200122
  Serious: Yes (Other)
  Sender: FDA-Public Use
  Company Number: CZ-MYLANLABS-2018M1029509

PATIENT
  Age: 28 Year
  Sex: Male

DRUGS (22)
  1. ZOMETA [Suspect]
     Active Substance: ZOLEDRONIC ACID
     Indication: OSTEOLYSIS
     Dosage: 4 MILLIGRAM (4 MG, Q2MO)
     Route: 042
  2. ZOMETA [Suspect]
     Active Substance: ZOLEDRONIC ACID
     Dosage: 4 MG, (4 MG, 28 WKINTERVAL)
     Route: 042
     Dates: start: 20050628, end: 20090101
  3. AFLIBERCEPT [Suspect]
     Active Substance: AFLIBERCEPT
     Indication: ANGIOPATHY
     Dosage: 4 MILLIGRAM/KILOGRAM, Q2W
     Route: 065
     Dates: start: 201506, end: 2017
  4. BEVACIZUMAB. [Concomitant]
     Active Substance: BEVACIZUMAB
     Indication: HAEMANGIOMA
     Dosage: 7.5 MG/KG, Q3W
     Route: 065
     Dates: start: 201301, end: 201302
  5. CLARITHROMYCIN. [Concomitant]
     Active Substance: CLARITHROMYCIN
     Indication: EMPHYSEMA
     Dosage: UNK
     Route: 065
  6. PACLITAXEL. [Suspect]
     Active Substance: PACLITAXEL
     Indication: ANGIOPATHY
     Dosage: UNK
     Route: 065
     Dates: start: 201301, end: 201304
  7. INTRON A [Suspect]
     Active Substance: INTERFERON ALFA-2B
     Indication: ANGIOPATHY
     Dosage: 9 MEGA-INTERNATIONAL UNIT, QD
     Route: 065
     Dates: start: 20060401
  8. INTRON A [Suspect]
     Active Substance: INTERFERON ALFA-2B
     Indication: HAEMANGIOMA
     Dosage: 18 MEGA-INTERNATIONAL UNIT, QD
     Route: 065
     Dates: start: 20050623, end: 20060401
  9. REVLIMID [Concomitant]
     Active Substance: LENALIDOMIDE
     Indication: ANGIOPATHY
     Dosage: UNK
     Route: 065
  10. TAXOL [Suspect]
     Active Substance: PACLITAXEL
     Indication: ANGIOPATHY
     Dosage: UNK
  11. ZOMETA [Suspect]
     Active Substance: ZOLEDRONIC ACID
     Dosage: 4 MG, BIMONTHLY 4 MG, Q2M
     Route: 042
     Dates: start: 20170101
  12. THALIDOMIDE [Suspect]
     Active Substance: THALIDOMIDE
     Indication: PRODUCT USED FOR UNKNOWN INDICATION
     Dosage: 100 MILLIGRAM, QD
     Route: 065
     Dates: start: 201005, end: 201005
  13. CYCLOPHOSPHAMIDE. [Concomitant]
     Active Substance: CYCLOPHOSPHAMIDE
     Indication: ANGIOPATHY
     Dosage: UNK
     Route: 065
     Dates: start: 201204
  14. SANDOSTATIN [Concomitant]
     Active Substance: OCTREOTIDE ACETATE
     Indication: PRODUCT USED FOR UNKNOWN INDICATION
     Dosage: UNK
     Route: 065
  15. ZOMETA [Suspect]
     Active Substance: ZOLEDRONIC ACID
     Dosage: 4 MG, BIMONTHLY 4 MG, 28 WKINTERVAL
     Route: 042
     Dates: start: 20050623
  16. ZOMETA [Suspect]
     Active Substance: ZOLEDRONIC ACID
     Dosage: 4 MG, (4 MG, Q2MO)
     Route: 042
     Dates: start: 20090101, end: 20170101
  17. BEVACIZUMAB. [Concomitant]
     Active Substance: BEVACIZUMAB
     Indication: ANGIOPATHY
     Dosage: 7.5 MG/KG, Q3W
     Route: 065
     Dates: start: 201301, end: 201502
  18. ADRENALIN                          /00003901/ [Concomitant]
     Active Substance: EPINEPHRINE
     Indication: HAEMORRHAGE PROPHYLAXIS
     Dosage: UNK
     Route: 065
  19. PROPRANOLOL [Suspect]
     Active Substance: PROPRANOLOL HYDROCHLORIDE
     Indication: PRODUCT USED FOR UNKNOWN INDICATION
     Dosage: UNK
     Route: 065
  20. AFLIBERCEPT [Suspect]
     Active Substance: AFLIBERCEPT
     Indication: HAEMANGIOMA
     Dosage: 4 MILLIGRAM/KILOGRAM
     Route: 065
     Dates: start: 2015, end: 2017
  21. AFLIBERCEPT [Suspect]
     Active Substance: AFLIBERCEPT
     Dosage: 2 MILLIGRAM/KILOGRAM, Q2W
     Route: 065
     Dates: start: 2017
  22. MYRIN                              /00077401/ [Concomitant]
     Indication: ANGIOPATHY
     Dosage: UNK
     Route: 065
     Dates: start: 2006, end: 2010

REACTIONS (13)
  - Fatigue [Unknown]
  - Peripheral swelling [Unknown]
  - Pleural effusion [Unknown]
  - Osteonecrosis [Unknown]
  - Neuropathy peripheral [Unknown]
  - Decreased appetite [Unknown]
  - Hypertension [Recovered/Resolved]
  - Proteinuria [Recovering/Resolving]
  - Hypotension [Unknown]
  - Drug intolerance [Unknown]
  - Off label use [Unknown]
  - Depression [Unknown]
  - Product use in unapproved indication [Unknown]

NARRATIVE: CASE EVENT DATE: 2005
